FAERS Safety Report 4538231-2 (Version None)
Quarter: 2004Q4

REPORT INFORMATION
  Report Type: 
  Country: None (occurrence: None)
  Receive Date: 20041227
  Receipt Date: 20041215
  Transmission Date: 20050328
  Serious: Yes (Hospitalization)
  Sender: FDA-Public Use
  Company Number: US-JNJFOC-20041205081

PATIENT
  Sex: Female
  Weight: 124.74 kg

DRUGS (23)
  1. INFLIXIMAB [Suspect]
     Route: 042
  2. INFLIXIMAB [Suspect]
     Indication: RHEUMATOID ARTHRITIS
     Route: 042
  3. ALBUTEROL [Concomitant]
  4. ATIVAN [Concomitant]
  5. CALCIUM [Concomitant]
  6. ELAVIL [Concomitant]
  7. ENBREL [Concomitant]
  8. ENTERIC ASA [Concomitant]
  9. FOLIC ACID [Concomitant]
  10. IMDUR [Concomitant]
  11. IMITREX [Concomitant]
  12. LASIX [Concomitant]
  13. METHOTREXATE [Concomitant]
  14. NORVASC [Concomitant]
  15. OXYCODONE HCL [Concomitant]
  16. OXYCONTIN [Concomitant]
  17. POTASSIUM [Concomitant]
  18. PREDNISONE TAB [Concomitant]
  19. SYNTHROID [Concomitant]
  20. WELLBUTRIN [Concomitant]
  21. NEXIUM [Concomitant]
  22. NITROQUICK [Concomitant]
  23. ASTELIN [Concomitant]

REACTIONS (4)
  - ALANINE AMINOTRANSFERASE INCREASED [None]
  - ASPARTATE AMINOTRANSFERASE INCREASED [None]
  - GASTROENTERITIS [None]
  - URINARY TRACT INFECTION [None]
